FAERS Safety Report 4906321-8 (Version None)
Quarter: 2006Q1

REPORT INFORMATION
  Report Type: 
  Country: None (occurrence: None)
  Receive Date: 20060207
  Receipt Date: 20060127
  Transmission Date: 20060701
  Serious: Yes (Hospitalization, Other)
  Sender: FDA-Public Use
  Company Number: PAR_0485_2006

PATIENT
  Age: 53 Year
  Sex: Female

DRUGS (5)
  1. SULFAMETHOXAZOLE + TRIMETHOPRIM [Suspect]
     Indication: PYELONEPHRITIS
     Dosage: 480 MG QDAY
  2. SULFAMETHOXAZOLE + TRIMETHOPRIM [Suspect]
     Indication: PYELONEPHRITIS
     Dosage: 480 MG BID
  3. CIPROFLOXACIN [Concomitant]
  4. AMOXICILLIN AND CLAVULANATE POTASSIUM [Concomitant]
  5. TRIMETHOPRIM [Concomitant]

REACTIONS (21)
  - ABDOMINAL DISCOMFORT [None]
  - ABDOMINAL PAIN UPPER [None]
  - ABDOMINAL TENDERNESS [None]
  - C-REACTIVE PROTEIN INCREASED [None]
  - COLITIS ULCERATIVE [None]
  - DIARRHOEA [None]
  - DISEASE RECURRENCE [None]
  - DRUG THERAPY CHANGED [None]
  - FAECALOMA [None]
  - GASTROINTESTINAL DISORDER [None]
  - HEADACHE [None]
  - HYPERTHYROIDISM [None]
  - INFLAMMATION [None]
  - LYMPHADENOPATHY [None]
  - METABOLIC ACIDOSIS [None]
  - NAUSEA [None]
  - PANCREATITIS ACUTE [None]
  - PYREXIA [None]
  - RENAL PAIN [None]
  - UTERINE LEIOMYOMA [None]
  - UTERINE PROLAPSE [None]
